FAERS Safety Report 5325668-7 (Version None)
Quarter: 2007Q2

REPORT INFORMATION
  Report Type: 
  Country: None (occurrence: None)
  Receive Date: 20070515
  Receipt Date: 20070503
  Transmission Date: 20071010
  Serious: Yes (Other)
  Sender: FDA-Public Use
  Company Number: US-PFIZER INC-2007036654

PATIENT

DRUGS (1)
  1. EXUBERA [Suspect]

REACTIONS (2)
  - HAEMOPTYSIS [None]
  - LUNG INFILTRATION [None]
